FAERS Safety Report 13499703 (Version 2)
Quarter: 2017Q3

REPORT INFORMATION
  Report Type: Spontaneous
  Country: RU (occurrence: RU)
  Receive Date: 20170501
  Receipt Date: 20170725
  Transmission Date: 20171127
  Serious: Yes (Death, Life-Threatening)
  Sender: FDA-Public Use
  Company Number: RU-GE HEALTHCARE LIFE SCIENCES-2017CSU001031

PATIENT

DRUGS (1)
  1. OMNIPAQUE [Suspect]
     Active Substance: IOHEXOL
     Indication: CEREBROSPINAL FLUID LEAKAGE
     Dosage: UNK, SINGLE
     Route: 037
     Dates: start: 20170414, end: 20170414

REACTIONS (4)
  - Brain oedema [Fatal]
  - Anaphylactic shock [Fatal]
  - Seizure [Unknown]
  - Bradycardia [Unknown]

NARRATIVE: CASE EVENT DATE: 20170414
